FAERS Safety Report 7507593-6 (Version None)
Quarter: 2011Q2

REPORT INFORMATION
  Report Type: 
  Country: None (occurrence: None)
  Receive Date: 20110526
  Receipt Date: 20100930
  Transmission Date: 20111010
  Serious: No
  Sender: FDA-Public Use
  Company Number: US-MYLANLABS-2010S1018189

PATIENT
  Age: 52 Year
  Sex: Female

DRUGS (3)
  1. ESTRADIOL [Suspect]
     Indication: HORMONE REPLACEMENT THERAPY
     Route: 048
     Dates: start: 20060101, end: 20100909
  2. ESTRADIOL [Suspect]
     Route: 048
     Dates: start: 20100901
  3. ESTRADIOL [Suspect]
     Route: 048
     Dates: start: 20100910, end: 20100901

REACTIONS (6)
  - DRUG EFFECT INCREASED [None]
  - LIBIDO INCREASED [None]
  - MYALGIA [None]
  - NAUSEA [None]
  - DRUG EFFECT DECREASED [None]
  - HOT FLUSH [None]
